FAERS Safety Report 13603389 (Version 2)
Quarter: 2017Q4

REPORT INFORMATION
  Report Type: Spontaneous
  Country: AT (occurrence: AT)
  Receive Date: 20170601
  Receipt Date: 20171205
  Transmission Date: 20180320
  Serious: No
  Sender: FDA-Public Use
  Company Number: AT-PROMETHEUS LABORATORIES-2016PL000038

PATIENT
  Age: 46 Year
  Sex: Male

DRUGS (2)
  1. IFN ALPHA [Suspect]
     Active Substance: INTERFERON ALFA-2A OR INTERFERON ALFA-2B
     Indication: RENAL CELL CARCINOMA
     Dosage: UNK UNKNOWN, UNK
     Route: 058
  2. PROLEUKIN [Suspect]
     Active Substance: ALDESLEUKIN
     Indication: CLEAR CELL RENAL CELL CARCINOMA
     Dosage: UNK UNKNOWN, UNK
     Route: 065
     Dates: end: 200511

REACTIONS (1)
  - Disease progression [Unknown]
